FAERS Safety Report 14272255 (Version 5)
Quarter: 2018Q1

REPORT INFORMATION
  Report Type: Spontaneous
  Country: IT (occurrence: IT)
  Receive Date: 20171211
  Receipt Date: 20180302
  Transmission Date: 20180508
  Serious: Yes (Hospitalization, Other)
  Sender: FDA-Public Use
  Company Number: IT-TEVA-2017-IT-829259

PATIENT
  Age: 73 Year
  Sex: Female

DRUGS (7)
  1. SPIRIVA [Concomitant]
     Active Substance: TIOTROPIUM BROMIDE MONOHYDRATE
     Indication: ASTHMA
     Dosage: UNK
     Route: 048
  2. APIXABAN [Interacting]
     Active Substance: APIXABAN
     Indication: CEREBROVASCULAR ACCIDENT PROPHYLAXIS
     Dosage: UNK
     Route: 048
  3. FUROSEMIDE. [Concomitant]
     Active Substance: FUROSEMIDE
     Indication: CARDIAC FAILURE
     Dosage: UNK
     Route: 065
  4. PANTOPRAZOLE [Concomitant]
     Active Substance: PANTOPRAZOLE
     Indication: GASTRITIS
     Dosage: UNK
     Route: 065
  5. RELVAR ELLIPTA [Interacting]
     Active Substance: FLUTICASONE FUROATE\VILANTEROL TRIFENATATE
     Indication: ASTHMA
     Route: 055
  6. VERAPAMIL [Suspect]
     Active Substance: VERAPAMIL HYDROCHLORIDE
     Indication: CARDIAC FAILURE
     Dosage: UNK
     Route: 065
  7. CLEXANE [Interacting]
     Active Substance: ENOXAPARIN SODIUM
     Indication: THROMBOSIS PROPHYLAXIS
     Dosage: UNK
     Route: 058

REACTIONS (3)
  - Labelled drug-drug interaction medication error [Unknown]
  - Melaena [Unknown]
  - Anaemia [Unknown]

NARRATIVE: CASE EVENT DATE: 20170202
